FAERS Safety Report 6281272-8 (Version None)
Quarter: 2009Q3

REPORT INFORMATION
  Report Type: 
  Country: None (occurrence: None)
  Receive Date: 20090724
  Receipt Date: 20090331
  Transmission Date: 20100115
  Serious: No
  Sender: FDA-Public Use
  Company Number: A0777613A

PATIENT
  Sex: Female

DRUGS (2)
  1. AVANDIA [Suspect]
     Route: 048
     Dates: start: 20080101, end: 20080101
  2. GLUCOPHAGE [Suspect]
     Route: 048
     Dates: start: 20080101, end: 20080101

REACTIONS (3)
  - DIZZINESS [None]
  - MALAISE [None]
  - NAUSEA [None]
